FAERS Safety Report 15258779 (Version 1)
Quarter: 2018Q3

REPORT INFORMATION
  Report Type: Spontaneous
  Country: DE (occurrence: DE)
  Receive Date: 20180809
  Receipt Date: 20180809
  Transmission Date: 20181010
  Serious: Yes (Other)
  Sender: FDA-Public Use
  Company Number: DE-BAUSCH-BL-2018-021318

PATIENT
  Sex: Male

DRUGS (9)
  1. PREDNISOLON [Suspect]
     Active Substance: PREDNISOLONE
     Indication: MANTLE CELL LYMPHOMA
     Dosage: 3 COURSES, ACCORDING TO R?CHOP REGIMEN
     Route: 065
     Dates: start: 201108
  2. CYCLOPHOSPHAMID [Suspect]
     Active Substance: CYCLOPHOSPHAMIDE
     Indication: MANTLE CELL LYMPHOMA
     Dosage: 3 COURSES, ACCORDING TO R?CHOP REGIMEN
     Route: 065
     Dates: start: 201108
  3. CYTARABINE. [Suspect]
     Active Substance: CYTARABINE
     Indication: MANTLE CELL LYMPHOMA
     Dosage: 3 COURSES, ACCORDING TO R?DHAP REGIMEN
     Route: 065
     Dates: start: 201108
  4. VINCRISTIN [Suspect]
     Active Substance: VINCRISTINE
     Indication: MANTLE CELL LYMPHOMA
     Dosage: 3 COURSES, ACCORDING TO R?CHOP REGIMEN
     Route: 065
     Dates: start: 201108
  5. CISPLATIN. [Suspect]
     Active Substance: CISPLATIN
     Indication: MANTLE CELL LYMPHOMA
     Dosage: 3 COURSES, ACCORDING TO R?DHAP REGIMEN
     Route: 065
     Dates: start: 201108
  6. RITUXAN [Suspect]
     Active Substance: RITUXIMAB
     Indication: MANTLE CELL LYMPHOMA
     Dosage: AS MAINTENANCE THERAPY
     Route: 065
     Dates: start: 201207
  7. DEXAMETHASONE. [Suspect]
     Active Substance: DEXAMETHASONE
     Indication: MANTLE CELL LYMPHOMA
     Dosage: 3 COURSES, ACCORDING TO R?DHAP REGIMEN
     Route: 065
     Dates: start: 201108
  8. RITUXAN [Suspect]
     Active Substance: RITUXIMAB
     Dosage: 3 COURSES, ACCORDING TO R?CHOP REGIMEN
     Route: 065
     Dates: start: 201108
  9. HYDROXYDAUNORUBICIN [Suspect]
     Active Substance: DOXORUBICIN
     Indication: MANTLE CELL LYMPHOMA
     Dosage: 3 COURSES, ACCORDING TO R?CHOP REGIMEN
     Route: 065
     Dates: start: 201108

REACTIONS (2)
  - Fatigue [Unknown]
  - Device related thrombosis [Unknown]

NARRATIVE: CASE EVENT DATE: 201109
